FAERS Safety Report 8137400-2 (Version None)
Quarter: 2012Q1

REPORT INFORMATION
  Report Type: 
  Country: None (occurrence: None)
  Receive Date: 20120210
  Receipt Date: 20120130
  Transmission Date: 20120608
  Serious: Yes (Life-Threatening)
  Sender: FDA-Public Use
  Company Number: 1000028037

PATIENT
  Age: 83 Year
  Sex: Female
  Weight: 51 kg

DRUGS (7)
  1. CALCICHEW D3 (CALCIUM CARBONATE, CHOLECALCIFEROL, VITAMIN D3) (CALCIUM [Concomitant]
  2. LEVOTHYROXINE (LEVOTHYROXINE SODIUM) (LEVOTHYROXINE SODIUM) [Concomitant]
  3. ALENDRONATE (ALENDRONATE SODIUM) (ALENDRONATE SODIUM) [Concomitant]
  4. HYDROXYCHLOROQUINE (HYDROXYCHLOROQUINE) (HYDROXYCHLOROQUINE) [Concomitant]
  5. PREDNISOLONE [Concomitant]
  6. LANSOPRAZOLE [Concomitant]
  7. CITALOPRAM HYDROBROMIDE [Suspect]
     Indication: DEPRESSED MOOD
     Dosage: 20 MG (20 MG,1 IN 1 D),ORAL
     Route: 048
     Dates: end: 20120102

REACTIONS (3)
  - VENTRICULAR TACHYCARDIA [None]
  - PRESYNCOPE [None]
  - UNRESPONSIVE TO STIMULI [None]
